FAERS Safety Report 17432114 (Version 1)
Quarter: 2020Q1

REPORT INFORMATION
  Report Type: Report from Study
  Country: JP (occurrence: JP)
  Receive Date: 20200218
  Receipt Date: 20200218
  Transmission Date: 20200409
  Serious: Yes (Other)
  Sender: FDA-Public Use
  Company Number: JP-BAUSCH-BL-2020-004841

PATIENT
  Age: 69 Year
  Sex: Male
  Weight: 58 kg

DRUGS (37)
  1. FLUOROURACIL. [Suspect]
     Active Substance: FLUOROURACIL
     Indication: COLON CANCER
     Route: 065
  2. FLUOROURACIL. [Suspect]
     Active Substance: FLUOROURACIL
     Indication: COLON CANCER
     Dosage: 2 MONTHS 10 DAYS
     Route: 040
     Dates: start: 20180525, end: 20180803
  3. ZALTRAP [Suspect]
     Active Substance: ZIV-AFLIBERCEPT
     Indication: COLON CANCER
     Dosage: 230 MG/BODY; DURATION: 3 MONTHS 7 DAYS
     Route: 041
     Dates: start: 20180525, end: 20180831
  4. CALCIUM FOLINATE [Suspect]
     Active Substance: LEUCOVORIN CALCIUM
     Dosage: 1 MONTH 13 DAYS
     Route: 065
     Dates: start: 20180928, end: 20181109
  5. FLUOROURACIL. [Suspect]
     Active Substance: FLUOROURACIL
     Dosage: 1X: ONE TIME
     Route: 040
     Dates: start: 20181122, end: 20181122
  6. FLUOROURACIL. [Suspect]
     Active Substance: FLUOROURACIL
     Dosage: 1X: ONE TIME
     Route: 041
     Dates: start: 20181122, end: 20181122
  7. FLUOROURACIL. [Suspect]
     Active Substance: FLUOROURACIL
     Dosage: 1X: ONE TIME
     Route: 040
     Dates: start: 20181221, end: 20181221
  8. FLUOROURACIL. [Suspect]
     Active Substance: FLUOROURACIL
     Dosage: 1X: ONE TIME
     Route: 041
     Dates: start: 20181221, end: 20181221
  9. FLUOROURACIL. [Suspect]
     Active Substance: FLUOROURACIL
     Dosage: 1X: ONE TIME
     Route: 040
     Dates: start: 20190118, end: 20190118
  10. ZALTRAP [Suspect]
     Active Substance: ZIV-AFLIBERCEPT
     Dosage: 1X: ONE TIME
     Route: 041
     Dates: start: 20181122, end: 20181122
  11. ZALTRAP [Suspect]
     Active Substance: ZIV-AFLIBERCEPT
     Dosage: 1X: ONE TIME
     Route: 041
     Dates: start: 20190301, end: 20190301
  12. CALCIUM FOLINATE [Suspect]
     Active Substance: LEUCOVORIN CALCIUM
     Dosage: 1X: ONE TIME
     Route: 065
     Dates: start: 20181221, end: 20181221
  13. CALCIUM FOLINATE [Suspect]
     Active Substance: LEUCOVORIN CALCIUM
     Route: 065
  14. FLUOROURACIL. [Suspect]
     Active Substance: FLUOROURACIL
     Route: 040
     Dates: start: 20180817, end: 20180831
  15. CALCIUM FOLINATE [Suspect]
     Active Substance: LEUCOVORIN CALCIUM
     Dosage: 1X: ONE TIME
     Route: 065
     Dates: start: 20181122, end: 20181122
  16. IRINOTECAN [Suspect]
     Active Substance: IRINOTECAN
     Dosage: 1 MONTH 13 DAYS
     Route: 065
     Dates: start: 20180928, end: 20181109
  17. IRINOTECAN [Suspect]
     Active Substance: IRINOTECAN
     Dosage: 1X: ONE TIME
     Route: 065
     Dates: start: 20190301, end: 20190301
  18. FLUOROURACIL. [Suspect]
     Active Substance: FLUOROURACIL
     Dosage: 1X: ONE TIME
     Route: 041
     Dates: start: 20190118, end: 20190118
  19. ZALTRAP [Suspect]
     Active Substance: ZIV-AFLIBERCEPT
     Dosage: (115 MG/BODY), 1X: ONE TIME
     Route: 041
     Dates: start: 20181026, end: 20181026
  20. CALCIUM FOLINATE [Suspect]
     Active Substance: LEUCOVORIN CALCIUM
     Dosage: 1X: ONE TIME
     Route: 065
     Dates: start: 20190301, end: 20190301
  21. IRINOTECAN [Suspect]
     Active Substance: IRINOTECAN
     Dosage: 1X: ONE TIME
     Route: 065
     Dates: start: 20190118, end: 20190118
  22. FLUOROURACIL. [Suspect]
     Active Substance: FLUOROURACIL
     Dosage: 1 MONTH 13 DAYS
     Route: 040
     Dates: start: 20180928, end: 20181109
  23. ZALTRAP [Suspect]
     Active Substance: ZIV-AFLIBERCEPT
     Dosage: 115 MG/BODY; 1X: ONE TIME
     Route: 041
     Dates: start: 20180928, end: 20180928
  24. IRINOTECAN [Suspect]
     Active Substance: IRINOTECAN
     Indication: COLON CANCER
     Dosage: 2 MONTHS 10 DAYS
     Route: 065
     Dates: start: 20180525, end: 20180803
  25. IRINOTECAN [Suspect]
     Active Substance: IRINOTECAN
     Route: 065
     Dates: start: 20180817, end: 20180831
  26. CALCIUM FOLINATE [Suspect]
     Active Substance: LEUCOVORIN CALCIUM
     Route: 065
     Dates: start: 20180817, end: 20180831
  27. IRINOTECAN [Suspect]
     Active Substance: IRINOTECAN
     Route: 065
  28. FLUOROURACIL. [Suspect]
     Active Substance: FLUOROURACIL
     Dosage: 3 MONTHS 7 DAYS
     Route: 041
     Dates: start: 20180525, end: 20180831
  29. FLUOROURACIL. [Suspect]
     Active Substance: FLUOROURACIL
     Dosage: 1X: ONE TIME
     Route: 040
     Dates: start: 20190301, end: 20190301
  30. FLUOROURACIL. [Suspect]
     Active Substance: FLUOROURACIL
     Dosage: 1X: ONE TIME
     Route: 041
     Dates: start: 20190301, end: 20190301
  31. ZALTRAP [Suspect]
     Active Substance: ZIV-AFLIBERCEPT
     Dosage: 1X: ONE TIME
     Route: 041
     Dates: start: 20181221, end: 20181221
  32. CALCIUM FOLINATE [Suspect]
     Active Substance: LEUCOVORIN CALCIUM
     Indication: COLON CANCER
     Dosage: 2 MONTHS 10 DAYS
     Route: 065
     Dates: start: 20180525, end: 20180803
  33. IRINOTECAN [Suspect]
     Active Substance: IRINOTECAN
     Dosage: 1X: ONE TIME
     Route: 065
     Dates: start: 20181221, end: 20181221
  34. FLUOROURACIL. [Suspect]
     Active Substance: FLUOROURACIL
     Route: 041
     Dates: start: 20180817, end: 20180831
  35. FLUOROURACIL. [Suspect]
     Active Substance: FLUOROURACIL
     Dosage: 1 MONTH 13 DAYS
     Route: 041
     Dates: start: 20180928, end: 20181109
  36. CALCIUM FOLINATE [Suspect]
     Active Substance: LEUCOVORIN CALCIUM
     Dosage: 1X: ONE TIME
     Route: 065
     Dates: start: 20190118, end: 20190118
  37. IRINOTECAN [Suspect]
     Active Substance: IRINOTECAN
     Dosage: 1X: ONE TIME
     Route: 065
     Dates: start: 20181122, end: 20181122

REACTIONS (1)
  - Febrile neutropenia [Recovered/Resolved]

NARRATIVE: CASE EVENT DATE: 20180725
